FAERS Safety Report 15101657 (Version 1)
Quarter: 2018Q3

REPORT INFORMATION
  Report Type: Spontaneous
  Country: JP (occurrence: JP)
  Receive Date: 20180703
  Receipt Date: 20180703
  Transmission Date: 20181010
  Serious: Yes (Other)
  Sender: FDA-Public Use
  Company Number: JP-GLAXOSMITHKLINE-JP2018JPN113421

PATIENT
  Age: 29 Year
  Sex: Female

DRUGS (3)
  1. LAMICTAL [Suspect]
     Active Substance: LAMOTRIGINE
     Indication: EPILEPSY
     Dosage: 50 MG, 1D
     Route: 048
  2. LAMICTAL [Suspect]
     Active Substance: LAMOTRIGINE
     Dosage: 100 MG, 1D
     Route: 048
  3. TOCILIZUMAB (GENETICAL RECOMBINATION) [Concomitant]
     Indication: RHEUMATOID ARTHRITIS
     Dosage: 360 MG, MONTH

REACTIONS (9)
  - Pyrexia [Unknown]
  - Diarrhoea [Unknown]
  - Lymphadenopathy [Unknown]
  - Rash pustular [Unknown]
  - Erythema [Recovered/Resolved]
  - Hepatic function abnormal [Unknown]
  - Drug reaction with eosinophilia and systemic symptoms [Unknown]
  - Rash maculo-papular [Recovered/Resolved]
  - Leukopenia [Unknown]
